FAERS Safety Report 5391435-1 (Version None)
Quarter: 2007Q3

REPORT INFORMATION
  Report Type: 
  Country: None (occurrence: None)
  Receive Date: 20070719
  Receipt Date: 20070718
  Transmission Date: 20080115
  Serious: Yes (Hospitalization, Other)
  Sender: FDA-Public Use
  Company Number: B0479297A

PATIENT
  Age: 41 Year
  Sex: Male

DRUGS (6)
  1. NICOTINE [Suspect]
     Indication: DRUG USE FOR UNKNOWN INDICATION
     Route: 065
  2. CLOZAPINE [Suspect]
     Indication: BIPOLAR DISORDER
     Route: 065
  3. CAFFEINE [Suspect]
     Indication: DRUG USE FOR UNKNOWN INDICATION
     Route: 065
  4. EPILIM [Concomitant]
     Dosage: 1000MG TWICE PER DAY
  5. NEO-MERCAZOLE TAB [Concomitant]
     Indication: BASEDOW'S DISEASE
  6. SOLIAN [Concomitant]
     Dosage: 400MG PER DAY

REACTIONS (8)
  - ANTIPSYCHOTIC DRUG LEVEL BELOW THERAPEUTIC [None]
  - BIPOLAR DISORDER [None]
  - DRUG INTERACTION [None]
  - ELEVATED MOOD [None]
  - INSOMNIA [None]
  - MANIA [None]
  - PERSECUTORY DELUSION [None]
  - SEDATION [None]
